FAERS Safety Report 11584852 (Version 2)
Quarter: 2015Q4

REPORT INFORMATION
  Report Type: Report from Study
  Country: US (occurrence: US)
  Receive Date: 20151001
  Receipt Date: 20151027
  Transmission Date: 20160304
  Serious: No
  Sender: FDA-Public Use
  Company Number: US-AMGEN-USASL2015095687

PATIENT
  Age: 51 Year
  Sex: Female

DRUGS (1)
  1. ENBREL [Suspect]
     Active Substance: ETANERCEPT
     Indication: RHEUMATOID ARTHRITIS
     Dosage: 50 MG, ONCE PER WEEK
     Route: 065
     Dates: start: 200307

REACTIONS (6)
  - Rheumatoid lung [Unknown]
  - Dry eye [Unknown]
  - Sleep apnoea syndrome [Unknown]
  - Headache [Unknown]
  - Dry skin [Unknown]
  - Bronchitis [Unknown]

NARRATIVE: CASE EVENT DATE: 201510
